FAERS Safety Report 5237435-3 (Version None)
Quarter: 2007Q1

REPORT INFORMATION
  Report Type: 
  Country: None (occurrence: None)
  Receive Date: 20070213
  Receipt Date: 20070202
  Transmission Date: 20070707
  Serious: Yes (Hospitalization)
  Sender: FDA-Public Use
  Company Number: DE-PFIZER INC-2007010001

PATIENT
  Sex: Female

DRUGS (5)
  1. AROMASIN [Suspect]
     Indication: BREAST CANCER FEMALE
     Route: 048
  2. DIGIMERCK MINOR [Concomitant]
  3. BISOPROLOL FUMARATE [Concomitant]
  4. CAPTOPRIL [Concomitant]
  5. ESIDRIX [Concomitant]

REACTIONS (1)
  - COMA HEPATIC [None]
